FAERS Safety Report 5523240-7 (Version None)
Quarter: 2007Q4

REPORT INFORMATION
  Report Type: 
  Country: None (occurrence: None)
  Receive Date: 20071116
  Receipt Date: 20071116
  Transmission Date: 20080405
  Serious: Yes (Hospitalization)
  Sender: FDA-Public Use
  Company Number: None

PATIENT
  Sex: Female
  Weight: 61.2356 kg

DRUGS (4)
  1. ALIMTA [Suspect]
     Indication: METASTASIS
     Dosage: 500 MG/M2 D 1, 8 Q 21 D IV
     Route: 042
     Dates: start: 20070628, end: 20070910
  2. ALIMTA [Suspect]
     Indication: NEOPLASM MALIGNANT
     Dosage: 500 MG/M2 D 1, 8 Q 21 D IV
     Route: 042
     Dates: start: 20070628, end: 20070910
  3. ERLOTINIB [Suspect]
     Indication: METASTASIS
     Dosage: 250 MG D 2-16 Q 21 D P.O.
     Route: 048
     Dates: start: 20070629, end: 20070925
  4. ERLOTINIB [Suspect]
     Indication: NEOPLASM MALIGNANT
     Dosage: 250 MG D 2-16 Q 21 D P.O.
     Route: 048
     Dates: start: 20070629, end: 20070925

REACTIONS (4)
  - DISEASE PROGRESSION [None]
  - HAEMOGLOBIN DECREASED [None]
  - PULMONARY EMBOLISM [None]
  - VAGINAL HAEMORRHAGE [None]
